FAERS Safety Report 9780885 (Version 3)
Quarter: 2014Q1

REPORT INFORMATION
  Report Type: Report from Study
  Country: CA (occurrence: CA)
  Receive Date: 20131224
  Receipt Date: 20140106
  Transmission Date: 20141002
  Serious: Yes (Death, Life-Threatening, Hospitalization)
  Sender: FDA-Public Use
  Company Number: PHHY2013CA127560

PATIENT
  Sex: Male

DRUGS (16)
  1. CLOZARIL [Suspect]
     Indication: SCHIZOPHRENIA
     Dosage: 25 MG, BID
     Route: 048
     Dates: start: 20131021
  2. CLOZARIL [Suspect]
     Indication: HALLUCINATION, AUDITORY
  3. APO RABEPRAZOLE [Concomitant]
     Dosage: 1 DF, QD (7 TAB)
  4. PMS-OLANZAPINE [Concomitant]
     Dosage: 1 DF, PRN (1 AS REQUIRED FOR VOICES UP TO 3 TIMES A DAY)
  5. PMS-OLANZAPINE [Concomitant]
     Dosage: 6 DF, DAILY (2 TABLETS EVERY MORNING AND 4 TABLET EVERY NIGHT AT BEDTIME)
  6. ELTROXIN [Concomitant]
     Dosage: 0.05 MG, QD (1 TABLET ONCE A DAY)
  7. APO FOLIC [Concomitant]
     Dosage: 5 MG, QD (1 TAB DAILY)
  8. NOVO-FERROGLUC [Concomitant]
     Dosage: 2 DF, BID (300 MG, 2 TABLETS TWICE DAILY)
  9. NOVO-CHLORPROMAZINE [Concomitant]
     Dosage: 2 DF, DIALY (1 TAB EVERY MORNING AND 1 AT BEDTIME)
  10. PMS-BENZTROPINE [Concomitant]
     Dosage: 1 DF, BID
  11. NOVASEN [Concomitant]
     Dosage: 1 DF, (1 TABLET MONDAY, WEDNESDAY AND FRIDAY)
  12. VITAMIN D [Concomitant]
     Dosage: 1 DF, QD
  13. FLUANXOL//FLUPENTIXOL DECANOATE [Concomitant]
     Dosage: 120 MG, BIW
     Route: 030
  14. SENOKOT                                 /UNK/ [Concomitant]
     Dosage: 2 DF, QHS (2 TABLETS EVERY NIGHT AT BEDTIME-CAN INCREASE TO 4 TAB IF NOT WORKING)
     Route: 048
  15. APO-LACTULOSE [Concomitant]
     Dosage: 60 ML, PRN (30-60 ML DAILY AS REQUIRED)
  16. CYANOCOBALAMIN [Concomitant]
     Dosage: 1 MG, QMO
     Route: 030

REACTIONS (3)
  - Death [Fatal]
  - Intestinal obstruction [Unknown]
  - Confusional state [Unknown]
